FAERS Safety Report 7358468-7 (Version None)
Quarter: 2011Q1

REPORT INFORMATION
  Report Type: 
  Country: None (occurrence: None)
  Receive Date: 20110314
  Receipt Date: 20110314
  Transmission Date: 20110831
  Serious: Yes (Other)
  Sender: FDA-Public Use
  Company Number: None

PATIENT
  Sex: Female
  Weight: 70 kg

DRUGS (1)
  1. SPIRONOLACTONE [Suspect]
     Indication: HYPERTENSION
     Dosage: 50 MG 3 TIMES A DAY ORAL  (30 DAYS 3 DIFF TIMES BEFORE 2007)
     Route: 048

REACTIONS (2)
  - DIZZINESS [None]
  - DRUG HYPERSENSITIVITY [None]
